FAERS Safety Report 5833692-0 (Version None)
Quarter: 2008Q3

REPORT INFORMATION
  Report Type: 
  Country: None (occurrence: None)
  Receive Date: 20080801
  Receipt Date: 20080724
  Transmission Date: 20090109
  Serious: No
  Sender: FDA-Public Use
  Company Number: TPA2008A01200

PATIENT
  Age: 65 Year
  Sex: Female

DRUGS (14)
  1. ACTOS [Suspect]
     Dosage: 30 MG, 1 IN 1 D, PER ORAL
     Route: 048
  2. TRICOR [Concomitant]
  3. GLIPIZIDE [Concomitant]
  4. ULTRAM [Concomitant]
  5. PROTONIX [Concomitant]
  6. LYRICA [Concomitant]
  7. LEVOTHROID [Concomitant]
  8. LIPITOR [Concomitant]
  9. LASIX [Concomitant]
  10. ISOSORBIDE MONONITRATE [Concomitant]
  11. DIOVAN [Concomitant]
  12. ALLOPURINOL [Concomitant]
  13. POTASSIUM (POTASSIUM) [Concomitant]
  14. EFFEXOR XR [Concomitant]

REACTIONS (2)
  - ACCIDENTAL EXPOSURE [None]
  - NO ADVERSE EVENT [None]
